FAERS Safety Report 9914098 (Version 1)
Quarter: 2014Q1

REPORT INFORMATION
  Report Type: Report from Study
  Country: CA (occurrence: CA)
  Receive Date: 20140220
  Receipt Date: 20140220
  Transmission Date: 20141002
  Serious: Yes (Other)
  Sender: FDA-Public Use
  Company Number: CA-JNJFOC-20140211764

PATIENT
  Sex: Male
  Weight: 116.8 kg

DRUGS (3)
  1. REMICADE [Suspect]
     Indication: COLITIS ULCERATIVE
     Route: 042
     Dates: start: 200812, end: 201402
  2. SALOFALK [Concomitant]
     Route: 065
  3. CALCITE [Concomitant]
     Route: 065

REACTIONS (1)
  - Lupus-like syndrome [Unknown]
